FAERS Safety Report 11593434 (Version 1)
Quarter: 2015Q4

REPORT INFORMATION
  Report Type: Spontaneous
  Country: US (occurrence: US)
  Receive Date: 20151005
  Receipt Date: 20151005
  Transmission Date: 20160304
  Serious: Yes (Other)
  Sender: FDA-Public Use
  Company Number: US-PFIZER INC-2015328018

PATIENT
  Age: 15 Year
  Sex: Male
  Weight: 53 kg

DRUGS (6)
  1. PULMICORT TURBUHALER [Concomitant]
     Active Substance: BUDESONIDE
     Indication: ASTHMA
     Dosage: 1 PUFF IN THE MORNING AND AT NIGHT
  2. CETIRIZINE [Concomitant]
     Active Substance: CETIRIZINE HYDROCHLORIDE
     Indication: RHINITIS ALLERGIC
     Dosage: 10 MG, DAILY
     Route: 048
  3. SINGULAIR [Concomitant]
     Active Substance: MONTELUKAST SODIUM
     Indication: RHINITIS ALLERGIC
     Dosage: 10 MG, DAILY
     Route: 048
  4. FLONASE [Concomitant]
     Active Substance: FLUTICASONE PROPIONATE
     Indication: RHINITIS ALLERGIC
     Dosage: DAILY AS NEEDED
     Route: 045
  5. PFIZERPEN [Suspect]
     Active Substance: PENICILLIN G POTASSIUM
     Indication: ALLERGY TEST
     Dosage: DILUTE TO 10,000 UNIT PER ML, GIVE 0.1ML, SINGLE
     Route: 023
     Dates: start: 20150929, end: 20150929
  6. SINGULAIR [Concomitant]
     Active Substance: MONTELUKAST SODIUM
     Indication: ASTHMA

REACTIONS (2)
  - Administration site irritation [Not Recovered/Not Resolved]
  - Administration site necrosis [Not Recovered/Not Resolved]

NARRATIVE: CASE EVENT DATE: 20150929
